FAERS Safety Report 11826202 (Version 9)
Quarter: 2019Q2

REPORT INFORMATION
  Report Type: Report from Study
  Country: US (occurrence: US)
  Receive Date: 20151211
  Receipt Date: 20190625
  Transmission Date: 20190711
  Serious: Yes (Other)
  Sender: FDA-Public Use
  Company Number: PHHY2015US159937

PATIENT
  Age: 60 Year
  Sex: Female

DRUGS (1)
  1. GILENYA [Suspect]
     Active Substance: FINGOLIMOD HYDROCHLORIDE
     Indication: MULTIPLE SCLEROSIS
     Dosage: UNK, QD
     Route: 048

REACTIONS (13)
  - Peripheral swelling [Not Recovered/Not Resolved]
  - Lymphocyte count decreased [Unknown]
  - Solar lentigo [Not Recovered/Not Resolved]
  - Memory impairment [Not Recovered/Not Resolved]
  - Skin lesion [Not Recovered/Not Resolved]
  - Influenza [Not Recovered/Not Resolved]
  - Benign neoplasm [Not Recovered/Not Resolved]
  - Swelling [Unknown]
  - White blood cell count decreased [Unknown]
  - Limb injury [Not Recovered/Not Resolved]
  - Constipation [Not Recovered/Not Resolved]
  - Fibrous histiocytoma [Not Recovered/Not Resolved]
  - Seborrhoeic keratosis [Not Recovered/Not Resolved]

NARRATIVE: CASE EVENT DATE: 20150311
